FAERS Safety Report 6174977-0 (Version None)
Quarter: 2009Q2

REPORT INFORMATION
  Report Type: 
  Country: None (occurrence: None)
  Receive Date: 20090430
  Receipt Date: 20090105
  Transmission Date: 20091009
  Serious: No
  Sender: FDA-Public Use
  Company Number: US-ASTRAZENECA-2008UW24532

PATIENT
  Age: 73 Year
  Sex: Male
  Weight: 77.1 kg

DRUGS (4)
  1. NEXIUM [Suspect]
     Indication: GASTRITIS
     Route: 048
     Dates: start: 20081015
  2. NEXIUM [Suspect]
     Route: 048
  3. ACEON [Concomitant]
  4. ATENOLOL [Concomitant]

REACTIONS (2)
  - FREQUENT BOWEL MOVEMENTS [None]
  - POLLAKIURIA [None]
